FAERS Safety Report 11792812 (Version 1)
Quarter: 2015Q4

REPORT INFORMATION
  Report Type: Spontaneous
  Country: IT (occurrence: None)
  Receive Date: 20151130
  Receipt Date: 20151130
  Transmission Date: 20160305
  Serious: Yes (Other)
  Sender: FDA-Public Use
  Company Number: 2015RR-106601

PATIENT
  Age: 3 Year
  Sex: Female
  Weight: 14 kg

DRUGS (3)
  1. ONDASETRON (ONDASETRON) [Concomitant]
  2. VINCRISTINE (VINCRISTINE) [Concomitant]
     Active Substance: VINCRISTINE
  3. CARBOPLATIN (CARBOPLATIN) UNKNOWN [Suspect]
     Active Substance: CARBOPLATIN
     Indication: CHEMOTHERAPY
     Route: 042
     Dates: start: 20151103

REACTIONS (4)
  - Rash [None]
  - Vomiting [None]
  - Paraesthesia [None]
  - Infusion related reaction [None]

NARRATIVE: CASE EVENT DATE: 20151103
